FAERS Safety Report 11552179 (Version 2)
Quarter: 2016Q3

REPORT INFORMATION
  Report Type: Other
  Country: IT (occurrence: IT)
  Receive Date: 20150925
  Receipt Date: 20160929
  Transmission Date: 20161109
  Serious: Yes (Other)
  Sender: FDA-Public Use
  Company Number: IT-SUN PHARMACEUTICAL INDUSTRIES LTD-2013SUN00759

PATIENT

DRUGS (4)
  1. FLUOROURACIL. [Suspect]
     Active Substance: FLUOROURACIL
     Dosage: 2920 MG, CYCLIC
     Route: 042
     Dates: end: 20130422
  2. FLUOROURACIL. [Suspect]
     Active Substance: FLUOROURACIL
     Indication: COLON CANCER
     Dosage: 2920 MG, CYCLIC
     Route: 042
     Dates: start: 20130109, end: 20130220
  3. OXALIPLATIN. [Suspect]
     Active Substance: OXALIPLATIN
     Indication: COLON CANCER
     Dosage: 150 MG, CYCLIC
     Route: 042
     Dates: start: 20130109, end: 20130220
  4. OXALIPLATIN. [Suspect]
     Active Substance: OXALIPLATIN
     Dosage: 150 MG, CYCLIC
     Route: 042
     Dates: end: 20130422

REACTIONS (4)
  - Hypertransaminasaemia [Recovering/Resolving]
  - Hyperlipasaemia [Recovering/Resolving]
  - Pancreatitis [Not Recovered/Not Resolved]
  - Hyperamylasaemia [Recovering/Resolving]

NARRATIVE: CASE EVENT DATE: 20130228
